FAERS Safety Report 7294913-3 (Version None)
Quarter: 2011Q1

REPORT INFORMATION
  Report Type: 
  Country: None (occurrence: None)
  Receive Date: 20110216
  Receipt Date: 20110211
  Transmission Date: 20110831
  Serious: Yes (Other)
  Sender: FDA-Public Use
  Company Number: US-BAYER-2011-014323

PATIENT
  Sex: Female

DRUGS (1)
  1. YAZ [Suspect]
     Dosage: UNK
     Dates: start: 20080801, end: 20081001

REACTIONS (13)
  - PANIC ATTACK [None]
  - CHEST PAIN [None]
  - PAIN [None]
  - VAGINAL HAEMORRHAGE [None]
  - WEIGHT DECREASED [None]
  - HYPOAESTHESIA [None]
  - VISION BLURRED [None]
  - DYSPNOEA [None]
  - ANXIETY [None]
  - DEPRESSION [None]
  - EMOTIONAL DISTRESS [None]
  - HORMONE LEVEL ABNORMAL [None]
  - NAUSEA [None]
